FAERS Safety Report 9363009 (Version 1)
Quarter: 2013Q2

REPORT INFORMATION
  Report Type: Spontaneous
  Country: US (occurrence: None)
  Receive Date: 20130621
  Receipt Date: 20130621
  Transmission Date: 20140414
  Serious: Yes (Other)
  Sender: FDA-Public Use
  Company Number: None

PATIENT
  Age: 61 Year
  Sex: Male

DRUGS (1)
  1. XELODA [Suspect]
     Indication: RECTOSIGMOID CANCER
     Route: 048
     Dates: start: 20121207, end: 20130604

REACTIONS (1)
  - Bacteraemia [None]
